FAERS Safety Report 8885600 (Version 3)
Quarter: 2013Q3

REPORT INFORMATION
  Report Type: Spontaneous
  Country: US (occurrence: US)
  Receive Date: 20121102
  Receipt Date: 20130920
  Transmission Date: 20140515
  Serious: Yes (Hospitalization, Other)
  Sender: FDA-Public Use
  Company Number: US-009507513-1210USA011554

PATIENT
  Sex: Female

DRUGS (3)
  1. PEG-INTRON [Suspect]
     Indication: HEPATITIS C
     Dosage: REDIPEN, UNK
     Route: 058
     Dates: start: 20121013, end: 20130225
  2. REBETOL [Suspect]
     Indication: HEPATITIS C
     Dosage: UNK
     Route: 048
     Dates: start: 20121013, end: 20130225
  3. VICTRELIS [Suspect]
     Indication: HEPATITIS C
     Dosage: UNK
     Route: 048
     Dates: start: 20121117, end: 20130225

REACTIONS (6)
  - Pyrexia [Unknown]
  - Neutropenia [Unknown]
  - Dysgeusia [Unknown]
  - Urticaria [Unknown]
  - Asthenia [Unknown]
  - Pain [Unknown]
